FAERS Safety Report 10678530 (Version 1)
Quarter: 2014Q4

REPORT INFORMATION
  Report Type: Spontaneous
  Country: None (occurrence: None)
  Receive Date: 20141224
  Receipt Date: 20141224
  Transmission Date: 20150529
  Serious: No
  Sender: FDA-Public Use
  Company Number: None

PATIENT
  Age: 36 Year
  Sex: Male
  Weight: 90.72 kg

DRUGS (2)
  1. TESTOSTERONE. [Suspect]
     Active Substance: TESTOSTERONE
     Indication: ORCHIDECTOMY
     Dosage: 75-100MG FOR 7-10DAYS INTO THE MUSCLE
     Route: 030
     Dates: start: 20101201, end: 20141223
  2. TESTOSTERONE. [Suspect]
     Active Substance: TESTOSTERONE
     Indication: BLOOD TESTOSTERONE DECREASED
     Dosage: 75-100MG FOR 7-10DAYS INTO THE MUSCLE
     Route: 030
     Dates: start: 20101201, end: 20141223

REACTIONS (2)
  - Polycythaemia [None]
  - Pain in extremity [None]

NARRATIVE: CASE EVENT DATE: 20121201
